FAERS Safety Report 4811555-7 (Version None)
Quarter: 2005Q4

REPORT INFORMATION
  Report Type: 
  Country: None (occurrence: None)
  Receive Date: 20051025
  Receipt Date: 20051012
  Transmission Date: 20060501
  Serious: Yes (Death, Life-Threatening)
  Sender: FDA-Public Use
  Company Number: 2005143282

PATIENT
  Age: 41 Year
  Sex: Male
  Weight: 78 kg

DRUGS (6)
  1. FLUCONAZOLE [Suspect]
     Indication: ILL-DEFINED DISORDER
     Dosage: 800 MG (1 IN 1 D), INTRAVENOUS
     Route: 042
     Dates: start: 20050318, end: 20050331
  2. METOCLOPRAMIDE [Suspect]
     Indication: ILL-DEFINED DISORDER
     Dosage: 30 MG (3 IN 1 D), INTRAVENOUS
     Route: 042
     Dates: start: 20050222, end: 20050331
  3. TRANXENE [Suspect]
     Indication: ILL-DEFINED DISORDER
     Dosage: 30 MG (3 IN 1 D), INTRAVENOUS
     Route: 042
     Dates: start: 20050316, end: 20050331
  4. OFLOXACIN [Suspect]
     Indication: ILL-DEFINED DISORDER
     Dosage: 800 MG (2 IN 1 D), INTRAVENOUS
     Route: 042
     Dates: start: 20050222, end: 20050331
  5. CLAVENTIN (CLAVULANATE POTASSIUM, TICARCILLIN DISODIUM) [Suspect]
     Indication: ILL-DEFINED DISORDER
     Dosage: 15 GRAM (3 IN 1 D), INTRAVENOUS
     Route: 042
     Dates: start: 20050222, end: 20050331
  6. PARACETAMOL (PARACETAMOL) [Suspect]
     Indication: ILL-DEFINED DISORDER
     Dosage: INTRAVENOUS
     Route: 042
     Dates: start: 20050222, end: 20050331

REACTIONS (11)
  - BILE DUCT OBSTRUCTION [None]
  - BURKITT'S LYMPHOMA [None]
  - CANDIDA SEPSIS [None]
  - DIALYSIS [None]
  - DRUG INEFFECTIVE [None]
  - DRUG RESISTANCE [None]
  - JAUNDICE CHOLESTATIC [None]
  - RENAL FAILURE ACUTE [None]
  - THERAPY NON-RESPONDER [None]
  - TOXIC EPIDERMAL NECROLYSIS [None]
  - TUMOUR LYSIS SYNDROME [None]
